FAERS Safety Report 4444953-4 (Version None)
Quarter: 2004Q3

REPORT INFORMATION
  Report Type: 
  Country: None (occurrence: None)
  Receive Date: 20040909
  Receipt Date: 20040730
  Transmission Date: 20050211
  Serious: Yes (Death, Disabling)
  Sender: FDA-Public Use
  Company Number: CA-ROCHE-376570

PATIENT
  Age: 48 Year
  Sex: Male
  Weight: 81 kg

DRUGS (1)
  1. PEGASYS [Suspect]
     Indication: HEPATITIS C
     Route: 058
     Dates: start: 20040329, end: 20040527

REACTIONS (11)
  - ANAEMIA [None]
  - ASCITES [None]
  - DYSPEPSIA [None]
  - FAECES DISCOLOURED [None]
  - HAEMORRHAGE [None]
  - HEPATIC FAILURE [None]
  - LEUKOPENIA [None]
  - NEUTROPENIA [None]
  - OEDEMA PERIPHERAL [None]
  - RENAL FAILURE [None]
  - THERAPY NON-RESPONDER [None]
